FAERS Safety Report 5254565-0 (Version None)
Quarter: 2007Q1

REPORT INFORMATION
  Report Type: 
  Country: None (occurrence: None)
  Receive Date: 20070302
  Receipt Date: 20070221
  Transmission Date: 20070707
  Serious: Yes (Hospitalization, Disabling)
  Sender: FDA-Public Use
  Company Number: US-MERCK-0609USA02860

PATIENT
  Age: 74 Year
  Sex: Female

DRUGS (5)
  1. FOSAMAX [Suspect]
     Indication: OSTEOPENIA
     Route: 048
     Dates: start: 20031028, end: 20040929
  2. THALIDOMIDE [Concomitant]
     Route: 065
  3. DIURETIC (UNSPECIFIED) [Concomitant]
     Route: 065
  4. POTASSIUM (UNSPECIFIED) [Concomitant]
     Route: 065
  5. PROCRIT [Concomitant]
     Route: 065

REACTIONS (6)
  - ACTINOMYCOSIS [None]
  - ANXIETY [None]
  - OEDEMA PERIPHERAL [None]
  - OSTEOMYELITIS [None]
  - OSTEONECROSIS [None]
  - TRANSIENT ISCHAEMIC ATTACK [None]
